FAERS Safety Report 9477570 (Version 2)
Quarter: 2013Q3

REPORT INFORMATION
  Report Type: Spontaneous
  Country: US (occurrence: US)
  Receive Date: 20130827
  Receipt Date: 20130827
  Transmission Date: 20140515
  Serious: Yes (Hospitalization)
  Sender: FDA-Public Use
  Company Number: US-AMGEN-USASP2013054960

PATIENT
  Age: 79 Year
  Sex: Male
  Weight: 74.38 kg

DRUGS (9)
  1. ENBREL [Suspect]
     Indication: PSORIASIS
     Dosage: 50 MG, ONCE WEEKLY
     Route: 058
     Dates: start: 20090301, end: 20130726
  2. OXYCODONE [Concomitant]
     Dosage: UNK, UNK, PRN
     Route: 048
  3. TYLENOL                            /00020001/ [Concomitant]
     Dosage: UNK
     Route: 048
  4. SIMVASTATIN [Concomitant]
     Dosage: UNK
     Route: 048
  5. ASA [Concomitant]
     Dosage: UNK
     Route: 048
  6. LOSARTAN [Concomitant]
     Dosage: UNK
     Route: 048
  7. CLONAZEPAM [Concomitant]
     Dosage: UNK
     Route: 048
  8. ONDANSETRON [Concomitant]
     Dosage: UNK
     Route: 048
  9. HYDROCHLOROTHIAZIDE [Concomitant]
     Dosage: UNK
     Route: 048

REACTIONS (3)
  - Meningitis aseptic [Recovered/Resolved]
  - Walking aid user [Not Recovered/Not Resolved]
  - Headache [Not Recovered/Not Resolved]
